FAERS Safety Report 5853317-8 (Version None)
Quarter: 2008Q3

REPORT INFORMATION
  Report Type: 
  Country: None (occurrence: None)
  Receive Date: 20080821
  Receipt Date: 20080811
  Transmission Date: 20090109
  Serious: Yes (Hospitalization)
  Sender: FDA-Public Use
  Company Number: AU-MERCK-0808AUS00075

PATIENT
  Age: 70 Year
  Sex: Female

DRUGS (3)
  1. ZOCOR [Suspect]
     Route: 048
  2. ESCITALOPRAM [Suspect]
     Route: 065
     Dates: start: 20070521, end: 20070601
  3. INFLUENZA VIRUS SPLIT VIRION 3V VACCINE INACTIVATED [Concomitant]
     Indication: IMMUNISATION
     Route: 058
     Dates: start: 20070428

REACTIONS (4)
  - ARTHRALGIA [None]
  - CHROMATURIA [None]
  - HEPATITIS [None]
  - JAUNDICE [None]
